FAERS Safety Report 8080735-2 (Version None)
Quarter: 2012Q1

REPORT INFORMATION
  Report Type: 
  Country: None (occurrence: None)
  Receive Date: 20120130
  Receipt Date: 20120125
  Transmission Date: 20120608
  Serious: Yes (Hospitalization)
  Sender: FDA-Public Use
  Company Number: PHHY2012IT002571

PATIENT
  Sex: Female

DRUGS (8)
  1. ASPIRIN [Concomitant]
     Indication: CARDIOVASCULAR EVENT PROPHYLAXIS
     Dosage: 100 MG, UNK
     Route: 048
  2. OXCARBAZEPINE [Suspect]
     Indication: EPILEPSY
     Dosage: ONE POSOLOGICAL UNIT
     Route: 048
     Dates: start: 20060101, end: 20111116
  3. ISOPTIN [Suspect]
     Indication: MYOCARDIAL ISCHAEMIA
     Dosage: 80 MG 2 POSOLOGICAL UNITS
     Route: 048
     Dates: start: 20090101
  4. NITROCOR [Concomitant]
     Indication: HYPERTENSION
     Dosage: 10 MG/24 HRS TRANSDERMAL PATCH
     Route: 062
  5. PANTOPRAZOLE SODIUM [Suspect]
     Indication: GASTROOESOPHAGEAL REFLUX DISEASE
     Dosage: 20 MG ONE POSOLOGICAL UNIT
     Route: 048
     Dates: start: 20090101
  6. PERIDON [Concomitant]
     Indication: ABDOMINAL DISCOMFORT
     Dosage: 10 MG 2 POSOLOGICAL UNITS
     Route: 048
  7. SPIRONOLACTONE [Suspect]
     Indication: HYPERTENSION
     Dosage: (25 MG + 37 MG) ONE POSOLOGICAL UNIT
     Route: 048
     Dates: start: 20080101
  8. OXCARBAZEPINE [Suspect]
     Route: 048

REACTIONS (3)
  - HYPONATRAEMIA [None]
  - CONFUSIONAL STATE [None]
  - NERVOUS SYSTEM DISORDER [None]
